FAERS Safety Report 8259642-8 (Version None)
Quarter: 2012Q2

REPORT INFORMATION
  Report Type: 
  Country: None (occurrence: None)
  Receive Date: 20120404
  Receipt Date: 20120403
  Transmission Date: 20120825
  Serious: Yes (Hospitalization, Other)
  Sender: FDA-Public Use
  Company Number: PHEH2008US01023

PATIENT
  Sex: Female

DRUGS (24)
  1. GENTAMYCIN-MP [Concomitant]
  2. DECADRON [Concomitant]
  3. SULFAMETHOXAZOLE [Concomitant]
  4. ELIDEL [Suspect]
     Indication: DERMATITIS
     Route: 061
     Dates: start: 20050101
  5. CALCITONIN SALMON [Concomitant]
  6. SEPTRA [Concomitant]
  7. CEFTAZIDIME [Concomitant]
  8. MERCAPTOPURINE [Concomitant]
  9. ABRAXANE [Concomitant]
  10. DEXAMETHASONE [Concomitant]
  11. VINCRISTINE [Concomitant]
  12. PIPERACILLIN [Concomitant]
  13. DOXORUBICIN HCL [Concomitant]
  14. BLOOD TRANSFUSION, AUXILIARY PRODUCTS [Concomitant]
  15. ONDANSETRON [Concomitant]
  16. AMPICILLIN [Concomitant]
  17. CHEMOTHERAPEUTICS NOS [Concomitant]
  18. METHOTREXATE [Concomitant]
  19. OMNICEF [Concomitant]
  20. GRANISETRON [Concomitant]
  21. AMOXICILLIN [Concomitant]
  22. AUGMENTIN '125' [Concomitant]
  23. ZITHROMAX [Concomitant]
  24. ZOFRAN [Concomitant]

REACTIONS (36)
  - TOOTH DISORDER [None]
  - DENTAL CARIES [None]
  - OSTEOMYELITIS [None]
  - BACK PAIN [None]
  - GINGIVAL BLEEDING [None]
  - OVERWEIGHT [None]
  - VOMITING [None]
  - ARTHRITIS BACTERIAL [None]
  - C-REACTIVE PROTEIN INCREASED [None]
  - PNEUMONITIS [None]
  - ADHESION [None]
  - LEUKOCYTOSIS [None]
  - ABDOMINAL WALL INFECTION [None]
  - URINARY TRACT INFECTION [None]
  - DIARRHOEA [None]
  - SPLENOMEGALY [None]
  - BLOOD UREA INCREASED [None]
  - MYALGIA [None]
  - DEHYDRATION [None]
  - DYSURIA [None]
  - GRAM STAIN POSITIVE [None]
  - ORAL HERPES [None]
  - CONJUNCTIVITIS [None]
  - ANAEMIA [None]
  - NEUROPATHY PERIPHERAL [None]
  - ACUTE LYMPHOCYTIC LEUKAEMIA [None]
  - PYREXIA [None]
  - NEUTROPENIA [None]
  - VIRAL INFECTION [None]
  - LYMPHOCYTOSIS [None]
  - SINUS TACHYCARDIA [None]
  - UPPER RESPIRATORY TRACT INFECTION [None]
  - ACUTE SINUSITIS [None]
  - HEPATOMEGALY [None]
  - BLOOD CREATININE INCREASED [None]
  - APHTHOUS STOMATITIS [None]
